FAERS Safety Report 6356700-X (Version None)
Quarter: 2009Q3

REPORT INFORMATION
  Report Type: 
  Country: None (occurrence: None)
  Receive Date: 20090911
  Receipt Date: 20090911
  Transmission Date: 20100115
  Serious: Yes (Other)
  Sender: FDA-Public Use
  Company Number: None

PATIENT
  Age: 41 Year
  Sex: Female
  Weight: 73.4827 kg

DRUGS (2)
  1. REMICADE [Suspect]
     Indication: CROHN'S DISEASE
     Dosage: NOT SURE EVERY 8 WEEKS IV DRIP
     Route: 041
     Dates: start: 20081015, end: 20090717
  2. REMICADE [Suspect]
     Indication: FEMALE GENITAL TRACT FISTULA
     Dosage: NOT SURE EVERY 8 WEEKS IV DRIP
     Route: 041
     Dates: start: 20081015, end: 20090717

REACTIONS (14)
  - ARTHRALGIA [None]
  - DIARRHOEA [None]
  - EAR DISORDER [None]
  - FEELING ABNORMAL [None]
  - HOT FLUSH [None]
  - HYPERTENSION [None]
  - HYPOAESTHESIA [None]
  - HYPOAESTHESIA FACIAL [None]
  - HYPOAESTHESIA ORAL [None]
  - MYDRIASIS [None]
  - RESPIRATORY RATE INCREASED [None]
  - TREMOR [None]
  - URINARY TRACT INFECTION [None]
  - VOMITING [None]
